FAERS Safety Report 13142977 (Version 3)
Quarter: 2017Q1

REPORT INFORMATION
  Report Type: Report from Study
  Country: BE (occurrence: BE)
  Receive Date: 20170123
  Receipt Date: 20170216
  Transmission Date: 20170428
  Serious: Yes (Hospitalization)
  Sender: FDA-Public Use
  Company Number: BE-B.I. PHARMACEUTICALS,INC./RIDGEFIELD-2017-BI-001753

PATIENT
  Age: 73 Year
  Sex: Male
  Weight: 93.3 kg

DRUGS (13)
  1. VARGATEF [Suspect]
     Active Substance: NINTEDANIB
     Route: 048
     Dates: start: 20170119
  2. ASAFLOW [Concomitant]
     Active Substance: ASPIRIN
     Indication: PRODUCT USED FOR UNKNOWN INDICATION
     Route: 048
     Dates: start: 201612
  3. RELVAR [Concomitant]
     Active Substance: FLUTICASONE FUROATE\VILANTEROL TRIFENATATE
     Indication: PRODUCT USED FOR UNKNOWN INDICATION
     Route: 055
     Dates: start: 201612
  4. COVERAM [Concomitant]
     Active Substance: AMLODIPINE\PERINDOPRIL
     Route: 065
     Dates: start: 20170207
  5. PANTOMED [Concomitant]
     Active Substance: DEXPANTHENOL
     Indication: PRODUCT USED FOR UNKNOWN INDICATION
     Route: 048
     Dates: start: 201612
  6. MOXON [Concomitant]
     Indication: HYPERTENSION
     Route: 065
  7. VARGATEF [Suspect]
     Active Substance: NINTEDANIB
     Indication: NON-SMALL CELL LUNG CANCER
     Route: 048
     Dates: start: 20161222
  8. DOCETAXEL. [Suspect]
     Active Substance: DOCETAXEL
     Dosage: DAILY DOSE: 150 MG Q3W
     Route: 042
     Dates: start: 20170118
  9. MOXON [Concomitant]
     Route: 065
     Dates: start: 20170207
  10. COVERAM [Concomitant]
     Active Substance: AMLODIPINE\PERINDOPRIL
     Indication: HYPERTENSION
     Route: 065
  11. VARGATEF [Suspect]
     Active Substance: NINTEDANIB
     Route: 048
     Dates: start: 20170118
  12. CRESTOR [Concomitant]
     Active Substance: ROSUVASTATIN CALCIUM
     Indication: PRODUCT USED FOR UNKNOWN INDICATION
     Route: 048
     Dates: start: 201612
  13. DOCETAXEL. [Suspect]
     Active Substance: DOCETAXEL
     Indication: NON-SMALL CELL LUNG CANCER
     Dosage: DAILY DOSE: 150 MG Q3W
     Route: 042
     Dates: start: 20161221

REACTIONS (3)
  - Febrile neutropenia [Recovered/Resolved]
  - Respiratory failure [Not Recovered/Not Resolved]
  - Respiratory tract infection [Not Recovered/Not Resolved]

NARRATIVE: CASE EVENT DATE: 20161228
